FAERS Safety Report 9134084 (Version 1)
Quarter: 2013Q1

REPORT INFORMATION
  Report Type: Spontaneous
  Country: US (occurrence: None)
  Receive Date: 20130228
  Receipt Date: 20130228
  Transmission Date: 20140127
  Serious: Yes (Death)
  Sender: FDA-Public Use
  Company Number: None

PATIENT
  Age: 54 Year
  Sex: Female

DRUGS (2)
  1. ATIVAN [Suspect]
     Indication: AGITATION
     Route: 048
  2. ZYPREXA ZYDIS [Suspect]
     Indication: PSYCHOTIC DISORDER
     Route: 048

REACTIONS (8)
  - Cardio-respiratory arrest [None]
  - Dehydration [None]
  - Coronary artery disease [None]
  - Aggression [None]
  - Agitation [None]
  - Electrocardiogram QT prolonged [None]
  - Torsade de pointes [None]
  - Arrhythmia [None]
